FAERS Safety Report 14183413 (Version 2)
Quarter: 2018Q1

REPORT INFORMATION
  Report Type: Spontaneous
  Country: FR (occurrence: FR)
  Receive Date: 20171113
  Receipt Date: 20180306
  Transmission Date: 20180508
  Serious: Yes (Hospitalization, Other)
  Sender: FDA-Public Use
  Company Number: FR-PFIZER INC-2017478528

PATIENT
  Age: 29 Year
  Sex: Female

DRUGS (7)
  1. ZOPICLONE [Concomitant]
     Active Substance: ZOPICLONE
     Dosage: UNK
  2. XANAX [Suspect]
     Active Substance: ALPRAZOLAM
     Dosage: 2 MG, DAILY
     Route: 048
  3. LEXOMIL [Suspect]
     Active Substance: BROMAZEPAM
     Dosage: 24 MG, UNK
     Route: 048
  4. HYDROXYZINE [Concomitant]
     Active Substance: HYDROXYZINE HYDROCHLORIDE
     Dosage: UNK
  5. LEXOMIL [Suspect]
     Active Substance: BROMAZEPAM
     Dosage: 48 MG, DAILY
     Route: 048
  6. FLUOXETINE [Concomitant]
     Active Substance: FLUOXETINE HYDROCHLORIDE
     Dosage: UNK
  7. OXAZEPAM. [Concomitant]
     Active Substance: OXAZEPAM
     Dosage: UNK

REACTIONS (5)
  - Withdrawal syndrome [Unknown]
  - Paranoia [Unknown]
  - Intentional product use issue [Unknown]
  - Drug dependence [Not Recovered/Not Resolved]
  - Amnesia [Unknown]
